FAERS Safety Report 19082613 (Version 2)
Quarter: 2021Q2

REPORT INFORMATION
  Report Type: Spontaneous
  Country: JP (occurrence: JP)
  Receive Date: 20210401
  Receipt Date: 20210422
  Transmission Date: 20210717
  Serious: Yes (Other)
  Sender: FDA-Public Use
  Company Number: JP-PFIZER INC-2021342828

PATIENT
  Age: 94 Year
  Sex: Male

DRUGS (14)
  1. AVOLVE [Concomitant]
     Active Substance: DUTASTERIDE
  2. AZILVA [Concomitant]
     Active Substance: AZILSARTAN KAMEDOXOMIL
  3. MAGNESIUM OXIDE. [Concomitant]
     Active Substance: MAGNESIUM OXIDE
  4. LYRICA [Suspect]
     Active Substance: PREGABALIN
     Dosage: 75 MG 1X/DAY
     Route: 048
     Dates: start: 2017
  5. NAUZELIN [Concomitant]
     Active Substance: DOMPERIDONE
  6. RABEPRAZOLE [Concomitant]
     Active Substance: RABEPRAZOLE
  7. CRESTOR [Concomitant]
     Active Substance: ROSUVASTATIN CALCIUM
  8. NINJINTO [ATRACTYLODES LANCEA RHIZOME;GLYCYRRHIZA SPP. ROOT;PANAX GINS [Concomitant]
  9. METHYCOBAL [Concomitant]
     Active Substance: METHYLCOBALAMIN
  10. AMIODARONE [Concomitant]
     Active Substance: AMIODARONE
  11. TRIMEBUTINE [Concomitant]
     Active Substance: TRIMEBUTINE
  12. ALOSENN [ACHILLEA MILLEFOLIUM;RUBIA TINCTORUM ROOT TINCTURE;SENNA ALEX [Concomitant]
     Active Substance: ACHILLEA MILLEFOLIUM\RUBIA TINCTURE\SENNA FRUIT EXTRACT\SENNA LEAF\TARAXACUM OFFICINALE
  13. LIXIANA [Concomitant]
     Active Substance: EDOXABAN TOSYLATE
  14. ESTAZOLAM. [Concomitant]
     Active Substance: ESTAZOLAM

REACTIONS (1)
  - Glaucoma [Unknown]
